FAERS Safety Report 6876463-9 (Version None)
Quarter: 2010Q2

REPORT INFORMATION
  Report Type: 
  Country: None (occurrence: None)
  Receive Date: 20100610
  Receipt Date: 20100409
  Transmission Date: 20101027
  Serious: No
  Sender: FDA-Public Use
  Company Number: 2010SP021229

PATIENT
  Age: 12 Year
  Sex: Male

DRUGS (6)
  1. SAPHRIS [Suspect]
     Indication: DRUG USE FOR UNKNOWN INDICATION
     Dosage: 5 MG;TID;SL
  2. ABIILIFY [Concomitant]
  3. LUVOX [Concomitant]
  4. SEROQUEL [Concomitant]
  5. TRAZODONE/00447702/ [Concomitant]
  6. VYVANSE [Concomitant]

REACTIONS (2)
  - INAPPROPRIATE SCHEDULE OF DRUG ADMINISTRATION [None]
  - WEIGHT INCREASED [None]
